FAERS Safety Report 8329392-8 (Version None)
Quarter: 2012Q2

REPORT INFORMATION
  Report Type: 
  Country: None (occurrence: None)
  Receive Date: 20120502
  Receipt Date: 20120420
  Transmission Date: 20120825
  Serious: No
  Sender: FDA-Public Use
  Company Number: US-JNJFOC-20120410317

PATIENT
  Age: 33 Year
  Sex: Female

DRUGS (1)
  1. INVEGA SUSTENNA [Suspect]
     Indication: BIPOLAR DISORDER
     Route: 030
     Dates: start: 20120301

REACTIONS (2)
  - INJECTION SITE CYST [None]
  - WRONG TECHNIQUE IN DRUG USAGE PROCESS [None]
